FAERS Safety Report 4701115-0 (Version None)
Quarter: 2005Q2

REPORT INFORMATION
  Report Type: 
  Country: None (occurrence: None)
  Receive Date: 20050628
  Receipt Date: 20050620
  Transmission Date: 20051028
  Serious: Yes (Hospitalization)
  Sender: FDA-Public Use
  Company Number: PHRM2005FR01898

PATIENT
  Age: 4 Year
  Sex: Male
  Weight: 19 kg

DRUGS (1)
  1. ZADITEN [Suspect]
     Indication: ASTHMA
     Dosage: 1 MG, BID
     Route: 048
     Dates: start: 20050315, end: 20050428

REACTIONS (6)
  - ASTHENIA [None]
  - BLOOD CREATINE PHOSPHOKINASE INCREASED [None]
  - DERMATOMYOSITIS [None]
  - EOSINOPHILIA [None]
  - GAIT DISTURBANCE [None]
  - RASH PRURITIC [None]
